FAERS Safety Report 10164903 (Version 2)
Quarter: 2014Q3

REPORT INFORMATION
  Report Type: Spontaneous
  Country: US (occurrence: US)
  Receive Date: 20140510
  Receipt Date: 20140827
  Transmission Date: 20150326
  Serious: Yes (Hospitalization, Other)
  Sender: FDA-Public Use
  Company Number: US-BRISTOL-MYERS SQUIBB COMPANY-20199212

PATIENT
  Age: 44 Year
  Sex: Female
  Weight: 99.77 kg

DRUGS (5)
  1. BYDUREON [Suspect]
     Active Substance: EXENATIDE
     Indication: TYPE 2 DIABETES MELLITUS
     Dosage: ONGOING
     Route: 058
  2. LOVAZA [Concomitant]
     Active Substance: OMEGA-3-ACID ETHYL ESTERS
  3. PRAVASTATIN SODIUM. [Concomitant]
     Active Substance: PRAVASTATIN SODIUM
  4. ACTOS [Concomitant]
     Active Substance: PIOGLITAZONE HYDROCHLORIDE
  5. METANX [Concomitant]
     Active Substance: LEVOMEFOLATE CALCIUM\METHYLCOBALAMIN\PYRIDOXAL PHOSPHATE ANHYDROUS

REACTIONS (10)
  - Appendicitis [Unknown]
  - Female sterilisation [Unknown]
  - Carpal tunnel syndrome [Unknown]
  - Haemorrhage [Unknown]
  - Dyslipidaemia [Recovering/Resolving]
  - Memory impairment [Unknown]
  - Sleep disorder [Unknown]
  - Neuropathy peripheral [Unknown]
  - Plantar fasciitis [Unknown]
  - Menstruation irregular [Unknown]

NARRATIVE: CASE EVENT DATE: 2014
